FAERS Safety Report 10096519 (Version 1)
Quarter: 2014Q2

REPORT INFORMATION
  Report Type: Spontaneous
  Country: US (occurrence: US)
  Receive Date: 20140422
  Receipt Date: 20140422
  Transmission Date: 20141212
  Serious: No
  Sender: FDA-Public Use
  Company Number: US-GILEAD-2013-0068795

PATIENT
  Sex: Female

DRUGS (3)
  1. LETAIRIS [Suspect]
     Indication: PULMONARY ARTERIAL HYPERTENSION
     Dates: start: 20110120
  2. VENTAVIS [Concomitant]
  3. REVATIO [Concomitant]

REACTIONS (3)
  - Chest pain [Unknown]
  - Non-cardiac chest pain [Unknown]
  - Nasopharyngitis [Unknown]
